FAERS Safety Report 25388766 (Version 1)
Quarter: 2025Q2

REPORT INFORMATION
  Report Type: Spontaneous
  Country: IT (occurrence: IT)
  Receive Date: 20250603
  Receipt Date: 20250603
  Transmission Date: 20250717
  Serious: Yes (Other)
  Sender: JOHNSON AND JOHNSON
  Company Number: IT-JNJFOC-20250601070

PATIENT

DRUGS (1)
  1. SPRAVATO [Suspect]
     Active Substance: ESKETAMINE
     Indication: Product used for unknown indication
     Route: 045

REACTIONS (9)
  - Adverse event [Unknown]
  - Manic symptom [Unknown]
  - Somatic symptom disorder [Unknown]
  - Disturbance in social behaviour [Unknown]
  - Emotional distress [Unknown]
  - Dissociation [Unknown]
  - Dizziness [Unknown]
  - Nausea [Unknown]
  - Hypertension [Unknown]
